FAERS Safety Report 8923267 (Version 1)
Quarter: 2012Q4

REPORT INFORMATION
  Report Type: 
  Country: US (occurrence: US)
  Receive Date: 20121124
  Receipt Date: 20121124
  Transmission Date: 20130627
  Serious: Yes (Death, Hospitalization)
  Sender: FDA-Public Use
  Company Number: PHHY2012US106106

PATIENT
  Age: 75 Year
  Sex: Male

DRUGS (6)
  1. FLUCONAZOLE [Suspect]
     Indication: ANTIFUNGAL PROPHYLAXIS
     Dosage: 200 mg, daily
  2. VALACICLOVIR [Suspect]
     Indication: ANTIVIRAL PROPHYLAXIS
     Dosage: 500 mg, daily
  3. LEVOFLOXACIN [Suspect]
     Indication: ANTIBIOTIC PROPHYLAXIS
     Dosage: 500 mg, daily
  4. VORICONAZOLE [Suspect]
     Indication: ANTIFUNGAL PROPHYLAXIS
     Dosage: 200 mg, BID
  5. FLUDARABINE [Concomitant]
  6. CYTARABINE [Concomitant]

REACTIONS (11)
  - Septic shock [Fatal]
  - Arthritis bacterial [Unknown]
  - Arthralgia [Unknown]
  - Cellulitis [Unknown]
  - Pyrexia [Unknown]
  - Joint swelling [Unknown]
  - Bone pain [Unknown]
  - Hypokinesia [Unknown]
  - Chondrocalcinosis [Unknown]
  - Candidiasis [Unknown]
  - Bronchopneumonia [Unknown]
